FAERS Safety Report 4914650-7 (Version None)
Quarter: 2006Q1

REPORT INFORMATION
  Report Type: 
  Country: None (occurrence: None)
  Receive Date: 20060216
  Receipt Date: 20050603
  Transmission Date: 20060701
  Serious: Yes (Hospitalization, Disabling)
  Sender: FDA-Public Use
  Company Number: US-MERCK-0506USA00982

PATIENT
  Age: 64 Year
  Sex: Male
  Weight: 114 kg

DRUGS (2)
  1. VIOXX [Suspect]
     Indication: ARTHRITIS
     Route: 048
     Dates: start: 20000101, end: 20040719
  2. VIOXX [Suspect]
     Indication: ARTHRALGIA
     Route: 048
     Dates: start: 20000101, end: 20040719

REACTIONS (7)
  - BACK DISORDER [None]
  - CARDIAC DISORDER [None]
  - EMOTIONAL DISORDER [None]
  - EYE DISORDER [None]
  - HYPOAESTHESIA [None]
  - LIMB INJURY [None]
  - MYOCARDIAL INFARCTION [None]
